FAERS Safety Report 6189054-2 (Version None)
Quarter: 2009Q2

REPORT INFORMATION
  Report Type: 
  Country: None (occurrence: None)
  Receive Date: 20090512
  Receipt Date: 20090427
  Transmission Date: 20091009
  Serious: Yes (Other)
  Sender: FDA-Public Use
  Company Number: DSM-2009-00554

PATIENT
  Age: 78 Year
  Sex: Female
  Weight: 62 kg

DRUGS (3)
  1. SEVIKAR        (OLMESARTAN MEDOXOMIL/AMLODIPINE BESILATE) TABLET) [Suspect]
     Indication: ESSENTIAL HYPERTENSION
     Dosage: 20MG/5MG (1 IN 1 D),ORAL
     Route: 047
     Dates: start: 20090409, end: 20090420
  2. LEVOTHYROXINE SODIUM [Concomitant]
  3. HYPERLIPEN                  (CIPROFIBRATE) [Concomitant]

REACTIONS (4)
  - COUGH [None]
  - DYSPNOEA [None]
  - HYPERTENSION [None]
  - TACHYCARDIA [None]
